FAERS Safety Report 8725287 (Version 2)
Quarter: 2012Q4

REPORT INFORMATION
  Report Type: 
  Country: US (occurrence: US)
  Receive Date: 20120815
  Receipt Date: 20120906
  Transmission Date: 20130627
  Serious: Yes (Death, Other)
  Sender: FDA-Public Use
  Company Number: US-CELGENEUS-163-20785-12081420

PATIENT
  Age: 63 Year
  Sex: Male

DRUGS (3)
  1. THALOMID [Suspect]
     Indication: MULTIPLE MYELOMA
     Dosage: 100 Milligram
     Route: 048
     Dates: start: 20110302, end: 20120630
  2. PREDNISONE [Concomitant]
     Indication: MYELOMA
     Route: 048
     Dates: start: 20110302, end: 201206
  3. ZOMETA [Concomitant]
     Indication: MYELOMA
     Route: 041
     Dates: start: 201103, end: 201206

REACTIONS (2)
  - Death [Fatal]
  - Soft tissue disorder [Unknown]
